FAERS Safety Report 10088823 (Version 2)
Quarter: 2014Q2

REPORT INFORMATION
  Report Type: Spontaneous
  Country: FR (occurrence: FR)
  Receive Date: 20140421
  Receipt Date: 20140430
  Transmission Date: 20141212
  Serious: Yes (Hospitalization)
  Sender: FDA-Public Use
  Company Number: FR-JNJFOC-20140408162

PATIENT
  Age: 76 Year
  Sex: Female
  Weight: 83 kg

DRUGS (5)
  1. DUROGESIC [Suspect]
     Indication: PRODUCT USED FOR UNKNOWN INDICATION
     Route: 062
     Dates: start: 20130924, end: 20130924
  2. ACTISKENAN [Suspect]
     Indication: PRODUCT USED FOR UNKNOWN INDICATION
     Route: 048
     Dates: start: 20130924
  3. LEXOMIL [Concomitant]
     Dosage: HALF A TABLET ONCE A DAY ON EVENING
     Route: 048
     Dates: start: 20130924
  4. ADVIL [Concomitant]
     Dosage: 6 TO 8 TABLETS
     Route: 048
     Dates: start: 20130924
  5. OMEPRAZOLE [Concomitant]
     Route: 065

REACTIONS (6)
  - Overdose [Unknown]
  - Acute coronary syndrome [Recovered/Resolved]
  - Pneumonia aspiration [Recovered/Resolved]
  - Hypercapnic coma [Recovered/Resolved]
  - Vomiting [Recovered/Resolved]
  - Medication error [Unknown]
